FAERS Safety Report 14079921 (Version 2)
Quarter: 2017Q4

REPORT INFORMATION
  Report Type: Spontaneous
  Country: VN (occurrence: VN)
  Receive Date: 20171012
  Receipt Date: 20171018
  Transmission Date: 20180321
  Serious: Yes (Death, Other)
  Sender: FDA-Public Use
  Company Number: VN-BAYER-2017-190129

PATIENT
  Age: 45 Year
  Sex: Female

DRUGS (1)
  1. ULTRAVIST [Suspect]
     Active Substance: IOPROMIDE
     Indication: COMPUTERISED TOMOGRAM ABDOMEN
     Dosage: 80 ML, ONCE
     Dates: start: 20170929, end: 20170929

REACTIONS (3)
  - Death [Fatal]
  - Anaphylactic reaction [Unknown]
  - Rash [Unknown]

NARRATIVE: CASE EVENT DATE: 201709
